FAERS Safety Report 26090561 (Version 2)
Quarter: 2025Q4

REPORT INFORMATION
  Report Type: Spontaneous
  Country: CA (occurrence: CA)
  Receive Date: 20251126
  Receipt Date: 20251212
  Transmission Date: 20260118
  Serious: Yes (Other)
  Sender: ROCHE
  Company Number: CA-ROCHE-10000414339

PATIENT
  Sex: Female

DRUGS (2)
  1. RITUXAN [Suspect]
     Active Substance: RITUXIMAB
     Indication: Product used for unknown indication
     Dosage: PREVIOUS THERAPY SEP 2025
     Route: 042
  2. CELLCEPT [Suspect]
     Active Substance: MYCOPHENOLATE MOFETIL
     Indication: Product used for unknown indication
     Dosage: PREVIOUS THERAPY DEC 2024

REACTIONS (11)
  - Ill-defined disorder [Unknown]
  - Spinal fracture [Unknown]
  - Muscle atrophy [Unknown]
  - Osteogenesis imperfecta [Unknown]
  - Movement disorder [Unknown]
  - Hypoaesthesia [Unknown]
  - Weight decreased [Unknown]
  - Brain fog [Unknown]
  - Osteoporosis [Not Recovered/Not Resolved]
  - Paraesthesia [Unknown]
  - Exercise tolerance decreased [Unknown]
